FAERS Safety Report 11318351 (Version 1)
Quarter: 2015Q3

REPORT INFORMATION
  Report Type: Spontaneous
  Country: US (occurrence: US)
  Receive Date: 20150728
  Receipt Date: 20150728
  Transmission Date: 20151125
  Serious: No
  Sender: FDA-Public Use
  Company Number: US-GILEAD-2015-0163613

PATIENT

DRUGS (1)
  1. HARVONI [Suspect]
     Active Substance: LEDIPASVIR\SOFOSBUVIR
     Indication: HEPATITIS C
     Dosage: UNK
     Route: 065
     Dates: start: 20150202

REACTIONS (5)
  - Crepitations [Unknown]
  - Musculoskeletal stiffness [Unknown]
  - Platelet count decreased [Unknown]
  - Therapeutic response unexpected [Unknown]
  - Musculoskeletal pain [Unknown]
